FAERS Safety Report 6995936-1 (Version None)
Quarter: 2010Q3

REPORT INFORMATION
  Report Type: 
  Country: None (occurrence: None)
  Receive Date: 20100918
  Receipt Date: 20081118
  Transmission Date: 20110219
  Serious: Yes (Other)
  Sender: FDA-Public Use
  Company Number: US-WYE-H06894708

PATIENT
  Sex: Male
  Weight: 120.31 kg

DRUGS (4)
  1. EFFEXOR XR [Suspect]
     Indication: DEPRESSION
     Route: 048
     Dates: start: 20070201
  2. METFORMIN [Concomitant]
     Dosage: UNKNOWN
  3. GLYBURIDE [Concomitant]
     Dosage: UNKNOWN
  4. LITHIUM CARBONATE [Concomitant]
     Dosage: UNKNOWN

REACTIONS (2)
  - CONDITION AGGRAVATED [None]
  - TYPE 2 DIABETES MELLITUS [None]
